FAERS Safety Report 7313290-2 (Version None)
Quarter: 2011Q1

REPORT INFORMATION
  Report Type: 
  Country: None (occurrence: None)
  Receive Date: 20110217
  Receipt Date: 20110217
  Transmission Date: 20110831
  Serious: Yes (Other)
  Sender: FDA-Public Use
  Company Number: None

PATIENT
  Age: 47 Year
  Sex: Male
  Weight: 92.9874 kg

DRUGS (1)
  1. CELEXA [Suspect]
     Dates: start: 20110207, end: 20110213

REACTIONS (7)
  - ANXIETY [None]
  - SUICIDAL IDEATION [None]
  - FEAR [None]
  - INSOMNIA [None]
  - FEELING ABNORMAL [None]
  - PAIN [None]
  - MUSCLE TIGHTNESS [None]
